FAERS Safety Report 4652743-2 (Version None)
Quarter: 2005Q2

REPORT INFORMATION
  Report Type: 
  Country: None (occurrence: None)
  Receive Date: 20050503
  Receipt Date: 20050412
  Transmission Date: 20051028
  Serious: Yes (Hospitalization)
  Sender: FDA-Public Use
  Company Number: CIO05006843

PATIENT
  Age: 78 Year
  Sex: Female
  Weight: 56.7 kg

DRUGS (2)
  1. VICKS INHALER (BORNYL ACETATE .21 MG, CAMPHOR 57.97 MG, LEVMETAMFETAMI [Suspect]
     Indication: RHINORRHOEA
     Dosage: 2 INHAL, 1 /DAY  FOR 1 DAY, INTRANASAL
     Route: 045
     Dates: start: 20010422, end: 20010422
  2. ANTIHYPERTENSIVES [Concomitant]

REACTIONS (4)
  - CARDIOMYOPATHY [None]
  - DRUG HYPERSENSITIVITY [None]
  - MEDICATION ERROR [None]
  - MYOCARDIAL INFARCTION [None]
